FAERS Safety Report 25870873 (Version 1)
Quarter: 2025Q4

REPORT INFORMATION
  Report Type: Spontaneous
  Country: CN (occurrence: CN)
  Receive Date: 20251001
  Receipt Date: 20251001
  Transmission Date: 20260117
  Serious: Yes (Hospitalization)
  Sender: ROCHE
  Company Number: US-ROCHE-10000395877

PATIENT
  Age: 44 Year
  Sex: Female

DRUGS (8)
  1. BEVACIZUMAB [Suspect]
     Active Substance: BEVACIZUMAB
     Indication: Adenocarcinoma
     Dosage: 6 CYCLES
     Route: 065
     Dates: start: 201911, end: 202003
  2. CISPLATIN [Suspect]
     Active Substance: CISPLATIN
     Indication: Adenocarcinoma
     Dosage: 6 CYCLES
     Route: 065
     Dates: start: 201911, end: 202003
  3. PACLITAXEL [Suspect]
     Active Substance: PACLITAXEL
     Indication: Adenocarcinoma
     Dosage: 6 CYCLES
     Route: 065
     Dates: start: 201911, end: 202003
  4. NIRAPARIB [Concomitant]
     Active Substance: NIRAPARIB
     Route: 048
     Dates: start: 202003
  5. PEMBROLIZUMAB [Concomitant]
     Active Substance: PEMBROLIZUMAB
     Route: 042
     Dates: start: 202008
  6. LENVATINIB [Concomitant]
     Active Substance: LENVATINIB
     Route: 048
     Dates: start: 202008
  7. LENVATINIB [Concomitant]
     Active Substance: LENVATINIB
     Route: 048
  8. metronomic cyclophosphamide [Concomitant]
     Route: 048
     Dates: start: 202008

REACTIONS (3)
  - Myelosuppression [Unknown]
  - Hypertension [Unknown]
  - Vomiting [Unknown]
